FAERS Safety Report 6197159-5 (Version None)
Quarter: 2009Q2

REPORT INFORMATION
  Report Type: 
  Country: None (occurrence: None)
  Receive Date: 20090520
  Receipt Date: 20090512
  Transmission Date: 20091009
  Serious: Yes (Hospitalization)
  Sender: FDA-Public Use
  Company Number: US-GENENTECH-283063

PATIENT
  Sex: Female
  Weight: 118 kg

DRUGS (7)
  1. BEVACIZUMAB [Suspect]
     Indication: BREAST CANCER
     Dosage: 1261 MG, Q2W
     Route: 042
     Dates: start: 20081027, end: 20090219
  2. PACLITAXEL [Suspect]
     Indication: BREAST CANCER
     Dosage: 170 MG, 1/WEEK
     Route: 042
     Dates: start: 20081027
  3. ATENOLOL [Concomitant]
     Indication: HYPERTENSION
     Dosage: 100 MG, QD
     Route: 048
     Dates: start: 19980101
  4. PRILOSEC [Concomitant]
     Indication: GASTROOESOPHAGEAL REFLUX DISEASE
     Dosage: 20 MG, QD
     Route: 048
     Dates: start: 19980101
  5. ZOLOFT [Concomitant]
     Indication: DEPRESSION
     Dosage: 100 MG, QD
     Route: 048
     Dates: start: 19980101
  6. FLEXERIL [Concomitant]
     Indication: BACK PAIN
     Dosage: 10 MG, PRN
     Route: 048
     Dates: start: 20080304
  7. LASIX [Concomitant]
     Indication: OEDEMA PERIPHERAL
     Dosage: 20 MG, TID
     Route: 048
     Dates: start: 20090319

REACTIONS (1)
  - OEDEMA PERIPHERAL [None]
